FAERS Safety Report 5975908-6 (Version None)
Quarter: 2008Q4

REPORT INFORMATION
  Report Type: 
  Country: None (occurrence: None)
  Receive Date: 20081202
  Receipt Date: 20080211
  Transmission Date: 20090506
  Serious: No
  Sender: FDA-Public Use
  Company Number: US-AMGEN-KDL264941

PATIENT
  Sex: Female

DRUGS (2)
  1. ENBREL [Suspect]
     Indication: PSORIATIC ARTHROPATHY
     Route: 058
     Dates: start: 20060501
  2. METHOTREXATE [Concomitant]
     Route: 058
     Dates: start: 20051101

REACTIONS (4)
  - DRUG INEFFECTIVE [None]
  - EAR CONGESTION [None]
  - INJECTION SITE PAIN [None]
  - SINUSITIS [None]
